FAERS Safety Report 15650346 (Version 1)
Quarter: 2018Q4

REPORT INFORMATION
  Report Type: Spontaneous
  Country: US (occurrence: US)
  Receive Date: 20181123
  Receipt Date: 20181123
  Transmission Date: 20190205
  Serious: No
  Sender: FDA-Public Use
  Company Number: US-ELI_LILLY_AND_COMPANY-US201811010483

PATIENT
  Sex: Female

DRUGS (1)
  1. FORTEO [Suspect]
     Active Substance: TERIPARATIDE
     Indication: OSTEOPOROSIS
     Dosage: UNK UNK, UNKNOWN
     Route: 065
     Dates: start: 20181003, end: 20181019

REACTIONS (6)
  - Back pain [Unknown]
  - Pain in jaw [Unknown]
  - Balance disorder [Unknown]
  - Pain in extremity [Unknown]
  - Dizziness [Unknown]
  - Nausea [Unknown]
